FAERS Safety Report 6367919-6 (Version None)
Quarter: 2009Q3

REPORT INFORMATION
  Report Type: 
  Country: None (occurrence: None)
  Receive Date: 20090922
  Receipt Date: 20081110
  Transmission Date: 20100115
  Serious: No
  Sender: FDA-Public Use
  Company Number: A0747090A

PATIENT
  Age: 59 Year
  Sex: Female

DRUGS (9)
  1. SEREVENT [Suspect]
     Indication: ASTHMA
     Dosage: 1PUFF TWICE PER DAY
     Route: 055
     Dates: start: 20080824, end: 20080828
  2. SIROLIMUS [Concomitant]
  3. ASPIRIN [Concomitant]
  4. LEVOTHYROXINE SODIUM [Concomitant]
  5. PRAVASTATIN [Concomitant]
  6. LASIX [Concomitant]
  7. PANTOPRAZOLE SODIUM [Concomitant]
  8. MYFORTIC [Concomitant]
  9. PREDNISONE [Concomitant]

REACTIONS (2)
  - APHONIA [None]
  - VOCAL CORD DISORDER [None]
